FAERS Safety Report 18201592 (Version 1)
Quarter: 2020Q3

REPORT INFORMATION
  Report Type: Spontaneous
  Country: TR (occurrence: TR)
  Receive Date: 20200827
  Receipt Date: 20200827
  Transmission Date: 20201103
  Serious: Yes (Life-Threatening, Hospitalization, Other)
  Sender: FDA-Public Use
  Company Number: TR-LUPIN PHARMACEUTICALS INC.-2020-05098

PATIENT
  Age: 28 Year
  Sex: Male

DRUGS (3)
  1. OSELTAMIVIR [Suspect]
     Active Substance: OSELTAMIVIR
     Indication: COVID-19
     Dosage: 75 MILLIGRAM, BID
     Route: 065
  2. HYDROXYCHLOROQUINE [Suspect]
     Active Substance: HYDROXYCHLOROQUINE
     Indication: COVID-19
     Dosage: 200 MILLIGRAM, BID
     Route: 048
  3. HYDROXYCHLOROQUINE [Suspect]
     Active Substance: HYDROXYCHLOROQUINE
     Dosage: 1600 MILLIGRAM (OVERDOSE)
     Route: 065

REACTIONS (4)
  - Off label use [Unknown]
  - Product communication issue [Unknown]
  - Electrocardiogram QT prolonged [Recovered/Resolved]
  - Accidental overdose [Unknown]
